FAERS Safety Report 5268406-9 (Version None)
Quarter: 2007Q1

REPORT INFORMATION
  Report Type: 
  Country: None (occurrence: None)
  Receive Date: 20070315
  Receipt Date: 20070315
  Transmission Date: 20070707
  Serious: No
  Sender: FDA-Public Use
  Company Number: None

PATIENT
  Age: 36 Year
  Sex: Female
  Weight: 74.8435 kg

DRUGS (2)
  1. PAXIL [Suspect]
     Indication: DEPRESSION
     Dosage: 25MG 1 X A DAY PO
     Route: 048
     Dates: start: 20030201, end: 20070212
  2. PAXIL [Suspect]
     Indication: GENERALISED ANXIETY DISORDER
     Dosage: 25MG 1 X A DAY PO
     Route: 048
     Dates: start: 20030201, end: 20070212

REACTIONS (2)
  - DRUG WITHDRAWAL SYNDROME [None]
  - TINNITUS [None]
